FAERS Safety Report 4277273-1 (Version None)
Quarter: 2004Q1

REPORT INFORMATION
  Report Type: 
  Country: None (occurrence: None)
  Receive Date: 20040120
  Receipt Date: 20040109
  Transmission Date: 20041129
  Serious: Yes (Hospitalization)
  Sender: FDA-Public Use
  Company Number: FR-JNJFOC-20040101916

PATIENT
  Age: 70 Year
  Sex: Female
  Weight: 101 kg

DRUGS (6)
  1. REMICADE [Suspect]
     Indication: RHEUMATOID ARTHRITIS
     Dosage: 300 MG, INTRAVENOUS
     Route: 042
     Dates: start: 20030910
  2. METHOTREXATE [Concomitant]
  3. PREDNISONE [Concomitant]
  4. OMEPRAZOLE [Concomitant]
  5. CYCLODOL (PIROXICAM) [Concomitant]
  6. POTASSIUM CHLORIDE [Concomitant]

REACTIONS (26)
  - ARTHRALGIA [None]
  - ARTHROPATHY [None]
  - ATRIAL FIBRILLATION [None]
  - C-REACTIVE PROTEIN INCREASED [None]
  - CARDIAC FAILURE [None]
  - CONDITION AGGRAVATED [None]
  - DNA ANTIBODY POSITIVE [None]
  - DYSPNOEA [None]
  - DYSPNOEA EXERTIONAL [None]
  - EXTRAVASATION [None]
  - HAEMOGLOBIN DECREASED [None]
  - HEART RATE DECREASED [None]
  - IMMUNOGLOBULINS ABNORMAL [None]
  - MITRAL VALVE INCOMPETENCE [None]
  - OEDEMA PERIPHERAL [None]
  - PAIN [None]
  - PHYSICAL EXAMINATION ABNORMAL [None]
  - PULSE ABSENT [None]
  - PYREXIA [None]
  - RED BLOOD CELL SEDIMENTATION RATE INCREASED [None]
  - SALIVARY GLAND DISORDER [None]
  - SINUS ARRHYTHMIA [None]
  - SYNOVITIS [None]
  - THYROXINE FREE INCREASED [None]
  - VENTRICULAR HYPOKINESIA [None]
  - WEIGHT DECREASED [None]
